FAERS Safety Report 15289299 (Version 1)
Quarter: 2018Q3

REPORT INFORMATION
  Report Type: Spontaneous
  Country: US (occurrence: US)
  Receive Date: 20180803
  Receipt Date: 20180803
  Transmission Date: 20181010
  Serious: Yes (Other)
  Sender: FDA-Public Use
  Company Number: None

PATIENT
  Age: 34 Year
  Sex: Female

DRUGS (5)
  1. ESTRADIOL. [Concomitant]
     Active Substance: ESTRADIOL
  2. METHYLPREDNISOLONE. [Concomitant]
     Active Substance: METHYLPREDNISOLONE
  3. PROGESTERONE 50MG/ML [Suspect]
     Active Substance: PROGESTERONE
     Indication: INFERTILITY FEMALE
     Route: 030
     Dates: start: 20180619
  4. LEUPROLIDE, 1 MG [Suspect]
     Active Substance: LEUPROLIDE
     Indication: INFERTILITY FEMALE
     Route: 058
     Dates: start: 20180619
  5. PRENATAL TAB [Concomitant]

REACTIONS (1)
  - Abortion spontaneous [None]

NARRATIVE: CASE EVENT DATE: 20180730
